FAERS Safety Report 15147388 (Version 1)
Quarter: 2018Q3

REPORT INFORMATION
  Report Type: Report from Study
  Country: BE (occurrence: BE)
  Receive Date: 20180716
  Receipt Date: 20180716
  Transmission Date: 20181010
  Serious: Yes (Other)
  Sender: FDA-Public Use
  Company Number: BE-ACCORD-069436

PATIENT
  Age: 78 Year
  Sex: Female
  Weight: 50 kg

DRUGS (14)
  1. URFADYN [Concomitant]
     Active Substance: NIFURTOINOL
     Indication: URINARY TRACT INFECTION
     Dates: start: 20161005, end: 201701
  2. AMOXICILLIN. [Concomitant]
     Active Substance: AMOXICILLIN
     Indication: URINARY TRACT INFECTION
     Dates: start: 20161005, end: 20161015
  3. REMERGON [Concomitant]
     Active Substance: MIRTAZAPINE
     Dates: start: 20160620
  4. LITICAN [Concomitant]
     Active Substance: ALIZAPRIDE HYDROCHLORIDE
     Dates: start: 20160620
  5. EMCONCOR [Concomitant]
     Active Substance: BISOPROLOL FUMARATE
  6. ZOLPIDEM [Concomitant]
     Active Substance: ZOLPIDEM\ZOLPIDEM TARTRATE
     Dates: start: 20160620
  7. INNOHEP [Concomitant]
     Active Substance: TINZAPARIN SODIUM
     Dates: start: 20160620, end: 201611
  8. PACLITAXEL/PACLITAXEL LIPOSOME [Suspect]
     Active Substance: PACLITAXEL
     Indication: OVARIAN CANCER
     Route: 042
     Dates: start: 20160629, end: 20160720
  9. PANTOMED (BELGIUM) [Concomitant]
     Dates: start: 20160620
  10. AVASTIN [Suspect]
     Active Substance: BEVACIZUMAB
     Indication: OVARIAN CANCER
     Route: 042
     Dates: start: 20160629
  11. LASIX [Concomitant]
     Active Substance: FUROSEMIDE
  12. TRADONAL ODIS [Concomitant]
     Dates: start: 20160620
  13. TEMESTA (BELGIUM) [Concomitant]
  14. CARBOPLATIN. [Suspect]
     Active Substance: CARBOPLATIN
     Indication: OVARIAN CANCER
     Dosage: 2 AUC 3 WEEKS, ONE STOP?MOST RECENT DOSE PRIOR TO ONSET OF THIRD EPISODE OF NEUTROPENIA 08?DEC?2016
     Route: 042
     Dates: start: 20160629, end: 20160727

REACTIONS (10)
  - Tinnitus [Recovered/Resolved]
  - Hypertension [Recovered/Resolved]
  - Constipation [Recovered/Resolved]
  - Neutropenia [Recovered/Resolved]
  - Toothache [Recovered/Resolved]
  - Mucosal inflammation [Recovered/Resolved]
  - Epistaxis [Recovered/Resolved]
  - Polyneuropathy [Recovering/Resolving]
  - Fatigue [Recovering/Resolving]
  - Urinary tract infection [Recovered/Resolved]

NARRATIVE: CASE EVENT DATE: 20160727
